FAERS Safety Report 11865769 (Version 2)
Quarter: 2016Q1

REPORT INFORMATION
  Report Type: Report from Study
  Country: AU (occurrence: AU)
  Receive Date: 20151223
  Receipt Date: 20160112
  Transmission Date: 20160526
  Serious: Yes (Other)
  Sender: FDA-Public Use
  Company Number: AU-ABBVIE-15P-008-1522300-00

PATIENT
  Sex: Male

DRUGS (2)
  1. RIBAVIRIN. [Suspect]
     Active Substance: RIBAVIRIN
     Indication: HEPATITIS C
     Route: 048
  2. VIEKIRA PAK [Suspect]
     Active Substance: DASABUVIR\OMBITASVIR\PARITAPREVIR\RITONAVIR
     Indication: HEPATITIS C
     Dosage: AV1 X 2 MANE, AV2 X 2 BD
     Route: 048

REACTIONS (7)
  - Chest discomfort [Unknown]
  - Blindness [Unknown]
  - Dyspnoea [Unknown]
  - Vomiting [Unknown]
  - Adverse drug reaction [Unknown]
  - Cardiac fibrillation [Unknown]
  - Pruritus [Unknown]
